FAERS Safety Report 6447416-X (Version None)
Quarter: 2009Q4

REPORT INFORMATION
  Report Type: 
  Country: None (occurrence: None)
  Receive Date: 20091119
  Receipt Date: 20081117
  Transmission Date: 20100525
  Serious: Yes (Other)
  Sender: FDA-Public Use
  Company Number: US-AMGEN-KDL307583

PATIENT
  Sex: Female

DRUGS (6)
  1. ENBREL [Suspect]
     Indication: RHEUMATOID ARTHRITIS
     Route: 058
     Dates: start: 20070228
  2. PLAQUENIL [Concomitant]
     Route: 048
  3. SYNTHROID [Concomitant]
  4. BENICAR [Concomitant]
  5. FOLIC ACID [Concomitant]
  6. DARVOCET-N 100 [Concomitant]

REACTIONS (3)
  - BURSITIS INFECTIVE [None]
  - INFLUENZA LIKE ILLNESS [None]
  - STAPHYLOCOCCAL INFECTION [None]
